FAERS Safety Report 8274424-9 (Version None)
Quarter: 2012Q2

REPORT INFORMATION
  Report Type: 
  Country: None (occurrence: None)
  Receive Date: 20120409
  Receipt Date: 20120330
  Transmission Date: 20120825
  Serious: Yes (Life-Threatening, Hospitalization)
  Sender: FDA-Public Use
  Company Number: PT-008085

PATIENT
  Age: 78 Year
  Sex: Male

DRUGS (11)
  1. FIRMAGON [Suspect]
     Indication: PROSTATE CANCER
     Dosage: (SUBCUTANEOUS)
     Route: 058
     Dates: start: 20120305, end: 20120305
  2. ESOMEPRAZOLE MAGNESIUM [Concomitant]
  3. DARBEPOETIN ALFA [Concomitant]
  4. LISINOPRIL [Concomitant]
  5. ACETYLSALICYLIC ACID SRT [Concomitant]
  6. CALCIUM CARBONATE [Concomitant]
  7. CALCITRIOL [Concomitant]
  8. ESTRAMUSTINE [Concomitant]
  9. ALLOPURINOL [Concomitant]
  10. BISOPROLOL FUMARATE [Concomitant]
  11. BICALUTAMIDE [Concomitant]

REACTIONS (4)
  - PYREXIA [None]
  - NEUTROPENIA [None]
  - THROMBOCYTOPENIA [None]
  - PUNCTURE SITE HAEMORRHAGE [None]
